APPROVED DRUG PRODUCT: MOXATAG
Active Ingredient: AMOXICILLIN
Strength: 775MG
Dosage Form/Route: TABLET, EXTENDED RELEASE;ORAL
Application: N050813 | Product #001
Applicant: PRAGMA PHARMACEUTICALS LLC
Approved: Jan 23, 2008 | RLD: Yes | RS: No | Type: DISCN

PATENTS:
Patent 8299052 | Expires: May 7, 2027
Patent 8778924 | Expires: Dec 8, 2026
Patent 8357394 | Expires: Dec 8, 2026